FAERS Safety Report 20429625 (Version 1)
Quarter: 2022Q1

REPORT INFORMATION
  Report Type: Report from Study
  Country: FR (occurrence: FR)
  Receive Date: 20220204
  Receipt Date: 20220204
  Transmission Date: 20220424
  Serious: Yes (Hospitalization)
  Sender: FDA-Public Use
  Company Number: FR-SERVIER-S19007232

PATIENT

DRUGS (4)
  1. ONCASPAR [Suspect]
     Active Substance: PEGASPARGASE
     Indication: Acute lymphocytic leukaemia
     Dosage: 975 IU, ON D12, D26
     Route: 042
     Dates: start: 20190521
  2. VINCRISTINE SULFATE [Suspect]
     Active Substance: VINCRISTINE SULFATE
     Indication: Acute lymphocytic leukaemia
     Dosage: 0.93 MG, D8, D15, D22, D29
     Route: 042
     Dates: start: 20190517
  3. DEXAMETHASONE SODIUM PHOSPHATE [Suspect]
     Active Substance: DEXAMETHASONE SODIUM PHOSPHATE
     Indication: Acute lymphocytic leukaemia
     Dosage: 4 MG, QD,  D8 TO D28
     Route: 048
     Dates: start: 20190517
  4. METHOTREXATE [Suspect]
     Active Substance: METHOTREXATE
     Indication: Acute lymphocytic leukaemia
     Dosage: 10 MG, ON D13, D9, D18, D24
     Route: 037
     Dates: start: 20190518

REACTIONS (1)
  - Salmonella sepsis [Recovering/Resolving]

NARRATIVE: CASE EVENT DATE: 20190527
